FAERS Safety Report 7783102-1 (Version None)
Quarter: 2011Q3

REPORT INFORMATION
  Report Type: 
  Country: None (occurrence: None)
  Receive Date: 20110928
  Receipt Date: 20110921
  Transmission Date: 20111222
  Serious: Yes (Other)
  Sender: FDA-Public Use
  Company Number: US-B.I. PHARMACEUTICALS,INC./RIDGEFIELD-2011-BP-20531BP

PATIENT
  Age: 67 Year
  Sex: Male

DRUGS (10)
  1. PREVACID [Concomitant]
     Indication: GASTROOESOPHAGEAL REFLUX DISEASE
     Dosage: 30 MG
  2. ALTACE [Concomitant]
     Dosage: 10 MG
  3. DIPENTUM [Concomitant]
     Dosage: 1000 MG
  4. SYNTHROID [Concomitant]
     Dosage: 125 MCG
  5. PRADAXA [Suspect]
     Indication: ATRIAL FIBRILLATION
     Dates: start: 20110811, end: 20110815
  6. LEVITRA [Concomitant]
  7. PROAIR HFA [Concomitant]
  8. SPIRIVA [Concomitant]
     Dosage: 18 MCG
  9. ZOCOR [Concomitant]
     Dosage: 40 MG
  10. ASPIRIN [Concomitant]
     Dosage: 81 MG

REACTIONS (2)
  - ODYNOPHAGIA [None]
  - GASTROINTESTINAL NECROSIS [None]
